FAERS Safety Report 6937057-X (Version None)
Quarter: 2010Q3

REPORT INFORMATION
  Report Type: 
  Country: None (occurrence: None)
  Receive Date: 20100823
  Receipt Date: 20100816
  Transmission Date: 20110219
  Serious: Yes (Hospitalization)
  Sender: FDA-Public Use
  Company Number: PHHO2010GB12497

PATIENT
  Sex: Male
  Weight: 76 kg

DRUGS (3)
  1. ZOLEDRONATE T29581+SOLINJ+BM [Suspect]
     Indication: METASTASES TO BONE
     Dosage: UNK
     Route: 042
     Dates: start: 20100506
  2. DOCETAXEL [Suspect]
     Indication: METASTASES TO BONE
     Dosage: UNK
     Dates: start: 20100506
  3. PREDNISONE [Suspect]
     Indication: METASTASES TO BONE
     Dosage: UNK
     Dates: start: 20100506

REACTIONS (6)
  - INFECTION [None]
  - LETHARGY [None]
  - LUNG CONSOLIDATION [None]
  - MALAISE [None]
  - RENAL FAILURE [None]
  - RENAL IMPAIRMENT [None]
